FAERS Safety Report 4494365-2 (Version None)
Quarter: 2004Q4

REPORT INFORMATION
  Report Type: 
  Country: None (occurrence: None)
  Receive Date: 20041102
  Receipt Date: 20041018
  Transmission Date: 20050328
  Serious: Yes (Death)
  Sender: FDA-Public Use
  Company Number: GBS041015773

PATIENT
  Age: 16 Year
  Sex: Female
  Weight: 130 kg

DRUGS (1)
  1. FLUOXETINE [Suspect]
     Indication: DEPRESSION
     Dosage: 20 MG
     Dates: start: 20040907

REACTIONS (1)
  - COMPLETED SUICIDE [None]
